FAERS Safety Report 4371376-9 (Version None)
Quarter: 2004Q2

REPORT INFORMATION
  Report Type: 
  Country: None (occurrence: None)
  Receive Date: 20040607
  Receipt Date: 20040519
  Transmission Date: 20050107
  Serious: Yes (Death, Other)
  Sender: FDA-Public Use
  Company Number: PHBS2004JP06636

PATIENT
  Age: 39 Year
  Sex: Female
  Weight: 48 kg

DRUGS (9)
  1. CYCLOSPORINE [Suspect]
     Indication: STEM CELL TRANSPLANT
     Route: 042
     Dates: start: 20020801
  2. METHOTREXATE [Suspect]
     Indication: STEM CELL TRANSPLANT
     Route: 042
  3. ITRACONAZOLE [Concomitant]
     Dosage: 150 MG/DAY
     Route: 048
  4. AMPHOTERICIN B [Suspect]
     Indication: ZYGOMYCOSIS
     Dosage: 10 MG/DAY
     Route: 042
  5. AMPHOTERICIN B [Suspect]
     Dosage: 25 MG/DAY
     Route: 042
  6. AMPHOTERICIN B [Suspect]
     Dosage: 20 MG/DAY
     Route: 042
  7. AMPHOTERICIN B [Suspect]
     Dosage: 50 MG/DAY
     Route: 042
  8. CYTARABINE [Suspect]
     Indication: BONE MARROW CONDITIONING REGIMEN
  9. CYCLOPHOSPHAMIDE [Suspect]
     Indication: BONE MARROW CONDITIONING REGIMEN

REACTIONS (10)
  - BLOOD CREATININE INCREASED [None]
  - COUGH [None]
  - HAEMOSIDEROSIS [None]
  - NEPHROPATHY TOXIC [None]
  - PYREXIA [None]
  - RENAL TUBULAR NECROSIS [None]
  - RESPIRATORY FAILURE [None]
  - SPUTUM ABNORMAL [None]
  - URINE OUTPUT DECREASED [None]
  - ZYGOMYCOSIS [None]
